FAERS Safety Report 17766685 (Version 1)
Quarter: 2020Q2

REPORT INFORMATION
  Report Type: Spontaneous
  Country: US (occurrence: US)
  Receive Date: 20200511
  Receipt Date: 20200511
  Transmission Date: 20200714
  Serious: No
  Sender: FDA-Public Use
  Company Number: US-TEVA-2020-US-1233447

PATIENT
  Age: 75 Year
  Sex: Female

DRUGS (2)
  1. FOSAMAX [Concomitant]
     Active Substance: ALENDRONATE SODIUM
  2. FAMOTIDINE. [Suspect]
     Active Substance: FAMOTIDINE
     Indication: GASTROOESOPHAGEAL REFLUX DISEASE
     Route: 065
     Dates: start: 20200501, end: 20200502

REACTIONS (3)
  - Gluten sensitivity [Recovering/Resolving]
  - Faeces discoloured [Recovering/Resolving]
  - Diarrhoea [Recovering/Resolving]
